FAERS Safety Report 8984340 (Version 1)
Quarter: 2012Q4

REPORT INFORMATION
  Report Type: Spontaneous
  Country: GB (occurrence: None)
  Receive Date: 20121217
  Receipt Date: 20121217
  Transmission Date: 20130627
  Serious: Yes (Hospitalization, Other)
  Sender: FDA-Public Use
  Company Number: GER/UKI12/0027032

PATIENT
  Age: 55 Year
  Sex: Female

DRUGS (7)
  1. CETIRIZINE (CETIRIZINE) [Suspect]
     Indication: MIGRAINE
     Dosage: 1 dosage forms, 1 in 1 D,
  2. ABACAVIR + LAMIVUDINE [Suspect]
     Indication: HIV INFECTION
     Route: 048
     Dates: start: 201103, end: 201205
  3. AMITRIPTYLINE (AMITRIPTYLINE) [Suspect]
     Indication: MIGRAINE
  4. CAFFEINE [Suspect]
     Indication: MIGRAINE
  5. MEFENAMIC ACID [Suspect]
     Indication: MIGRAINE
  6. REYATAZ [Suspect]
     Indication: HIV INFECTION
     Dosage: 1 in 1 D
     Route: 048
     Dates: start: 201103, end: 201205
  7. RITONAVIR [Suspect]
     Indication: HIV INFECTION
     Dosage: 1 in 1 D
     Route: 048
     Dates: start: 201103, end: 201205

REACTIONS (3)
  - Lactic acidosis [None]
  - Mononeuropathy multiplex [None]
  - Metabolic acidosis [None]
